FAERS Safety Report 7987586-5 (Version None)
Quarter: 2011Q4

REPORT INFORMATION
  Report Type: 
  Country: None (occurrence: None)
  Receive Date: 20111216
  Receipt Date: 20110427
  Transmission Date: 20120403
  Serious: Yes (Other)
  Sender: FDA-Public Use
  Company Number: US-BRISTOL-MYERS SQUIBB COMPANY-15683253

PATIENT
  Age: 46 Year
  Sex: Male

DRUGS (3)
  1. ABILIFY [Suspect]
     Indication: BIPOLAR DISORDER
     Dosage: FOR OVER A YEAR; INITIAL DOSE 5MG; DOSE REDUCED TO 2MG/DAY.
     Route: 048
  2. LAMICTAL [Concomitant]
  3. PROVIGIL [Concomitant]

REACTIONS (1)
  - TARDIVE DYSKINESIA [None]
